FAERS Safety Report 6733512-6 (Version None)
Quarter: 2010Q2

REPORT INFORMATION
  Report Type: 
  Country: None (occurrence: None)
  Receive Date: 20100520
  Receipt Date: 20100511
  Transmission Date: 20101027
  Serious: Yes (Other)
  Sender: FDA-Public Use
  Company Number: US-PFIZER INC-2010059556

PATIENT
  Sex: Female
  Weight: 61.224 kg

DRUGS (1)
  1. ZOLOFT [Suspect]
     Indication: PANIC ATTACK
     Dosage: UNK
     Route: 048

REACTIONS (4)
  - CONVULSION [None]
  - EMOTIONAL DISORDER [None]
  - PARAESTHESIA [None]
  - TREMOR [None]
